FAERS Safety Report 5722566-1 (Version None)
Quarter: 2008Q2

REPORT INFORMATION
  Report Type: 
  Country: None (occurrence: None)
  Receive Date: 20080429
  Receipt Date: 20070810
  Transmission Date: 20081010
  Serious: No
  Sender: FDA-Public Use
  Company Number: US-ASTRAZENECA-2007UW19434

PATIENT
  Age: 62 Year
  Sex: Female
  Weight: 70.3 kg

DRUGS (6)
  1. NEXIUM [Suspect]
     Indication: GASTROOESOPHAGEAL REFLUX DISEASE
     Route: 048
     Dates: start: 20070501
  2. NEXIUM [Suspect]
     Indication: ULCER
     Route: 048
     Dates: start: 20070501
  3. VYTORIN [Concomitant]
  4. LISINOPRIL [Concomitant]
     Route: 048
  5. TOPROL-XL [Concomitant]
     Route: 048
  6. VITAMIN CAP [Concomitant]

REACTIONS (3)
  - DIZZINESS [None]
  - ILL-DEFINED DISORDER [None]
  - PALPITATIONS [None]
